FAERS Safety Report 25461933 (Version 1)
Quarter: 2025Q2

REPORT INFORMATION
  Report Type: Spontaneous
  Country: US (occurrence: None)
  Receive Date: 20250619
  Receipt Date: 20250619
  Transmission Date: 20250717
  Serious: Yes (Other)
  Sender: FDA-CTU
  Company Number: None

PATIENT
  Age: 53 Year
  Sex: Female

DRUGS (1)
  1. DIMETHYL FUMARATE [Suspect]
     Active Substance: DIMETHYL FUMARATE
     Indication: Multiple sclerosis
     Dosage: TWICE A DAY
     Dates: start: 20250425, end: 20250519

REACTIONS (3)
  - Nausea [None]
  - Influenza [None]
  - Therapy change [None]

NARRATIVE: CASE EVENT DATE: 20250425
